FAERS Safety Report 4817568-3 (Version None)
Quarter: 2005Q4

REPORT INFORMATION
  Report Type: 
  Country: None (occurrence: None)
  Receive Date: 20051031
  Receipt Date: 20051010
  Transmission Date: 20060501
  Serious: Yes (Life-Threatening, Hospitalization, Other)
  Sender: FDA-Public Use
  Company Number: 2003029187

PATIENT
  Age: 57 Year
  Sex: Female

DRUGS (6)
  1. ZIPRASIDONE (CAPS)  (ZIPRASIDONE) [Suspect]
     Indication: BIPOLAR II DISORDER
     Dosage: 160 MG (2 IN 1 D), ORAL
     Route: 048
  2. CLOMETHIAZOLE (CLOMETHIAZOLE) [Suspect]
     Indication: ILL-DEFINED DISORDER
     Dosage: 384 MG (DAILY), ORAL
     Route: 048
  3. FLUNITRAZEPAM (FLUNITRAZEPAM) [Suspect]
     Indication: ILL-DEFINED DISORDER
     Dosage: 2 MG (BID), ORAL
     Route: 048
  4. PAROXETINE HCL [Concomitant]
  5. LORAZEPAM [Concomitant]
  6. SODIUM PICOSULFATE (SODIUM PICOSULFATE) [Concomitant]

REACTIONS (11)
  - ANXIETY [None]
  - BLOOD PRESSURE INCREASED [None]
  - COMA [None]
  - ELECTROCARDIOGRAM QT CORRECTED INTERVAL PROLONGED [None]
  - HEART RATE INCREASED [None]
  - INTENTIONAL OVERDOSE [None]
  - OXYGEN SATURATION DECREASED [None]
  - POISONING [None]
  - SOMNOLENCE [None]
  - SUICIDE ATTEMPT [None]
  - TREMOR [None]
